FAERS Safety Report 12939001 (Version 3)
Quarter: 2016Q4

REPORT INFORMATION
  Report Type: Spontaneous
  Country: HU (occurrence: HU)
  Receive Date: 20161115
  Receipt Date: 20161222
  Transmission Date: 20170207
  Serious: Yes (Death, Hospitalization)
  Sender: FDA-Public Use
  Company Number: HU-ASTELLAS-2016US044512

PATIENT
  Age: 78 Year
  Sex: Male
  Weight: 60 kg

DRUGS (15)
  1. ZOLEDRONIC ACID [Concomitant]
     Active Substance: ZOLEDRONIC ACID
     Indication: PRODUCT USED FOR UNKNOWN INDICATION
     Dosage: UNK, EVERY 4 WEEKS
     Route: 065
  2. DIAPREL [Concomitant]
     Active Substance: GLICLAZIDE
     Indication: DIABETES MELLITUS
     Dosage: 1X 1 (STARTED 10 MONTHS AGO)
     Route: 065
  3. TRITACE [Concomitant]
     Active Substance: RAMIPRIL
     Indication: CARDIAC DISORDER
     Dosage: 2X 0.5 (STARTED 9 MONTHS AGO)
     Route: 065
  4. NEBIVOLOL TEVA [Concomitant]
     Indication: CARDIAC DISORDER
     Dosage: 1X 1 (STARTED 9 MONTHS AGO)
     Route: 065
  5. NOACID                             /00057401/ [Concomitant]
     Indication: HYPERCHLORHYDRIA
     Dosage: 2X 1 (STARTED 10 YEARS AGO)
     Route: 065
  6. ALFUZOSIN PHARMACENTER [Concomitant]
     Indication: PROSTATIC DISORDER
     Dosage: 1X 1 (STARTED 3 YEARS AGO)
     Route: 065
  7. MYOQINON [Concomitant]
     Indication: CARDIAC DISORDER
     Dosage: 2X 1 (STARTED 5 MONTHS AGO)
     Route: 065
  8. TAXOTERE [Concomitant]
     Active Substance: DOCETAXEL
     Indication: PRODUCT USED FOR UNKNOWN INDICATION
     Dosage: UNK UNK, UNKNOWN FREQ.
     Route: 065
     Dates: start: 201601
  9. KALDYUM [Concomitant]
     Active Substance: POTASSIUM CHLORIDE
     Indication: DIURETIC THERAPY
     Dosage: 1X 1 (STARTED 10 MONTHS AGO)
     Route: 065
  10. ELIGARD [Concomitant]
     Active Substance: LEUPROLIDE ACETATE
     Indication: PRODUCT USED FOR UNKNOWN INDICATION
     Dosage: 22.5 MG, CYCLIC (EVERY THREE MONTHS)
     Route: 065
  11. XTANDI [Suspect]
     Active Substance: ENZALUTAMIDE
     Indication: PROSTATE CANCER
     Route: 048
     Dates: start: 20160926, end: 20161102
  12. EUPHYLONG [Concomitant]
     Active Substance: THEOPHYLLINE ANHYDROUS
     Indication: LUNG DISORDER
     Dosage: 2X 1 (STARTED 10 MONTHS AGO)
     Route: 065
  13. SPIRIVA [Concomitant]
     Active Substance: TIOTROPIUM BROMIDE MONOHYDRATE
     Indication: HYPERCHLORHYDRIA
     Dosage: 1X 1 (STARTED 1 YEAR AGO)
     Route: 065
  14. DIMENIO [Concomitant]
     Indication: LUNG DISORDER
     Dosage: 2X 1 (STARTED 10 YEARS AGO)
     Route: 065
  15. FUROSEMID RATIOPHARM               /00032601/ [Concomitant]
     Active Substance: FUROSEMIDE
     Indication: DIURETIC THERAPY
     Dosage: 1X 1 (STARTED 10 MONTHS AGO)
     Route: 065

REACTIONS (7)
  - Malaise [Unknown]
  - Dyspnoea [Unknown]
  - Cardiac failure [Fatal]
  - Cardiac disorder [Not Recovered/Not Resolved]
  - Product size issue [Unknown]
  - Dysphagia [Unknown]
  - Cold sweat [Unknown]

NARRATIVE: CASE EVENT DATE: 20161028
